FAERS Safety Report 20811192 (Version 1)
Quarter: 2022Q2

REPORT INFORMATION
  Report Type: Spontaneous
  Country: FI (occurrence: FI)
  Receive Date: 20220510
  Receipt Date: 20220510
  Transmission Date: 20220721
  Serious: Yes (Hospitalization)
  Sender: FDA-Public Use
  Company Number: None

PATIENT
  Age: 41 Year
  Sex: Male

DRUGS (1)
  1. DISULFIRAM [Suspect]
     Active Substance: DISULFIRAM
     Indication: Alcoholism
     Dosage: 200 MILLIGRAM DAILY;
     Route: 048
     Dates: start: 20220126, end: 20220311

REACTIONS (2)
  - Drug-induced liver injury [Not Recovered/Not Resolved]
  - Hepatic failure [Not Recovered/Not Resolved]

NARRATIVE: CASE EVENT DATE: 20220305
